FAERS Safety Report 24022447 (Version 1)
Quarter: 2024Q2

REPORT INFORMATION
  Report Type: Spontaneous
  Country: CN (occurrence: CN)
  Receive Date: 20240627
  Receipt Date: 20240627
  Transmission Date: 20240715
  Serious: No
  Sender: FDA-Public Use
  Company Number: CN-ROCHE-3480541

PATIENT
  Age: 53 Year
  Sex: Female

DRUGS (1)
  1. ROZLYTREK [Suspect]
     Active Substance: ENTRECTINIB
     Indication: Lung adenocarcinoma
     Route: 048
     Dates: start: 20220525, end: 202208

REACTIONS (2)
  - Blood uric acid increased [Unknown]
  - Disease progression [Unknown]

NARRATIVE: CASE EVENT DATE: 20220701
